FAERS Safety Report 8061976-7 (Version None)
Quarter: 2012Q1

REPORT INFORMATION
  Report Type: 
  Country: None (occurrence: None)
  Receive Date: 20120118
  Receipt Date: 20120110
  Transmission Date: 20120608
  Serious: Yes (Other)
  Sender: FDA-Public Use
  Company Number: JPI-P-017921

PATIENT
  Age: 44 Year
  Sex: Female
  Weight: 54.4316 kg

DRUGS (10)
  1. MODAFINIL [Concomitant]
  2. MULTI-VITAMINS [Concomitant]
  3. XYREM [Suspect]
     Indication: NARCOLEPSY
     Dosage: SEE IMAGE
     Route: 048
     Dates: start: 20111012, end: 20111001
  4. XYREM [Suspect]
     Indication: NARCOLEPSY
     Dosage: SEE IMAGE
     Route: 048
     Dates: start: 20111001, end: 20111025
  5. XYREM [Suspect]
     Indication: NARCOLEPSY
     Dosage: SEE IMAGE
     Route: 048
     Dates: start: 20111026, end: 20111101
  6. XYREM [Suspect]
     Indication: NARCOLEPSY
     Dosage: SEE IMAGE
     Route: 048
     Dates: start: 20111102, end: 20111201
  7. ARMODAFINIL [Concomitant]
  8. VITAMINS NOS [Concomitant]
  9. CETIRIZINE [Concomitant]
  10. FISH OIL [Concomitant]

REACTIONS (12)
  - FALL [None]
  - DISORIENTATION [None]
  - ENDOMETRIOSIS [None]
  - PAIN [None]
  - MICTURITION URGENCY [None]
  - MUSCLE STRAIN [None]
  - STRESS FRACTURE [None]
  - SOMNOLENCE [None]
  - DIZZINESS [None]
  - PROCEDURAL PAIN [None]
  - MEMORY IMPAIRMENT [None]
  - HIP FRACTURE [None]
